FAERS Safety Report 6551145-1 (Version None)
Quarter: 2010Q1

REPORT INFORMATION
  Report Type: 
  Country: None (occurrence: None)
  Receive Date: 20100121
  Receipt Date: 20100108
  Transmission Date: 20100710
  Serious: Yes (Other)
  Sender: FDA-Public Use
  Company Number: 2010AP000049

PATIENT
  Age: 67 Year
  Sex: Male

DRUGS (13)
  1. FENOFIBRATE [Suspect]
     Indication: HYPERLIPIDAEMIA
     Dosage: 60 MG;QD
     Dates: end: 20091225
  2. TERAZOSIN HCL [Suspect]
     Indication: PROSTATOMEGALY
     Dosage: 4 TAB; QD;PO
     Route: 048
  3. SILDENAFIL CITRATE [Concomitant]
  4. EZETIMIBE [Concomitant]
  5. TERAZOSIN HYDROCHLORIDE [Concomitant]
  6. CLOPIDOGREL BISULFATE [Concomitant]
  7. ATENOLOL [Concomitant]
  8. RANITIDINE [Concomitant]
  9. DILTIAZEM HCL [Concomitant]
  10. RAMIPRIL [Concomitant]
  11. TESTOSTERONE ENANTHATE [Concomitant]
  12. ASPIRIN [Concomitant]
  13. ALPRAZOLAM [Concomitant]

REACTIONS (2)
  - MUSCLE SPASMS [None]
  - RHABDOMYOLYSIS [None]
